FAERS Safety Report 4644696-8 (Version None)
Quarter: 2005Q2

REPORT INFORMATION
  Report Type: 
  Country: None (occurrence: None)
  Receive Date: 20050422
  Receipt Date: 20050411
  Transmission Date: 20051028
  Serious: Yes (Hospitalization)
  Sender: FDA-Public Use
  Company Number: 2005-01241

PATIENT
  Sex: Female
  Weight: 72.6 kg

DRUGS (1)
  1. MIRTAZAPINE [Suspect]
     Indication: DEPRESSION
     Dosage: 1 TABLET, QHS, ORAL
     Route: 048
     Dates: start: 20040801

REACTIONS (4)
  - ARTERIAL DISORDER [None]
  - CARDIAC VALVE DISEASE [None]
  - GENERALISED OEDEMA [None]
  - MYOCARDIAL INFARCTION [None]
